FAERS Safety Report 5714500-5 (Version None)
Quarter: 2008Q2

REPORT INFORMATION
  Report Type: 
  Country: None (occurrence: None)
  Receive Date: 20080423
  Receipt Date: 20080415
  Transmission Date: 20081010
  Serious: Yes (Hospitalization)
  Sender: FDA-Public Use
  Company Number: PHHY2008JP04573

PATIENT
  Age: 20 Year
  Sex: Male

DRUGS (1)
  1. LAMISIL [Suspect]
     Dosage: 125 MG/DAY
     Route: 048

REACTIONS (4)
  - ASPARTATE AMINOTRANSFERASE INCREASED [None]
  - GENERAL PHYSICAL CONDITION ABNORMAL [None]
  - HEPATITIS B [None]
  - JAUNDICE [None]
